FAERS Safety Report 18738134 (Version 1)
Quarter: 2021Q1

REPORT INFORMATION
  Report Type: Spontaneous
  Country: FR (occurrence: FR)
  Receive Date: 20210114
  Receipt Date: 20210114
  Transmission Date: 20210419
  Serious: Yes (Other)
  Sender: FDA-Public Use
  Company Number: FR-SUN PHARMACEUTICAL INDUSTRIES LTD-2021RR-275361

PATIENT
  Age: 55 Year
  Sex: Male
  Weight: 81 kg

DRUGS (3)
  1. IBUPROFEN. [Suspect]
     Active Substance: IBUPROFEN
     Indication: PAIN
     Dosage: 1 DOSAGE FORM, UNK
     Route: 048
     Dates: start: 20201124, end: 20201124
  2. SPIRAMYCINE SANDOZ 3 M.U.I., COMPRIME PELLICULE [Suspect]
     Active Substance: SPIRAMYCIN
     Indication: BACTERIAL INFECTION
     Dosage: 9 MEGA?INTERNATIONAL UNIT, DAILY
     Route: 048
     Dates: start: 20201123, end: 20201202
  3. ALDARA [Suspect]
     Active Substance: IMIQUIMOD
     Indication: SKIN LESION
     Dosage: 3 DOSAGE FORM, WEEKLY
     Route: 003
     Dates: start: 20201123, end: 20201129

REACTIONS (1)
  - Eosinophilia [Recovered/Resolved]

NARRATIVE: CASE EVENT DATE: 20201130
